FAERS Safety Report 6058270-2 (Version None)
Quarter: 2009Q1

REPORT INFORMATION
  Report Type: 
  Country: None (occurrence: None)
  Receive Date: 20090130
  Receipt Date: 20090122
  Transmission Date: 20090719
  Serious: Yes (Death, Hospitalization)
  Sender: FDA-Public Use
  Company Number: AT-CELGENEUS-009-21880-09010010

PATIENT
  Sex: Male
  Weight: 75 kg

DRUGS (10)
  1. REVLIMID [Suspect]
     Indication: MYELOFIBROSIS
     Route: 048
     Dates: start: 20080929
  2. DANCOR [Concomitant]
     Route: 065
  3. DANCOR [Concomitant]
     Indication: HYPERTENSION
  4. ASPIRIN [Concomitant]
     Route: 065
  5. ASPIRIN [Concomitant]
     Indication: HYPERTENSION
  6. SELOKEN [Concomitant]
     Route: 065
  7. SELOKEN [Concomitant]
     Indication: HYPERTENSION
  8. UROSIN [Concomitant]
     Indication: DRUG USE FOR UNKNOWN INDICATION
     Route: 065
  9. EXJADE [Concomitant]
     Indication: BLOOD IRON INCREASED
     Route: 065
     Dates: start: 20081101
  10. SORTIS [Concomitant]
     Route: 065

REACTIONS (1)
  - MYOCARDIAL INFARCTION [None]
